FAERS Safety Report 17810896 (Version 4)
Quarter: 2020Q2

REPORT INFORMATION
  Report Type: Report from Study
  Country: US (occurrence: US)
  Receive Date: 20200521
  Receipt Date: 20200611
  Transmission Date: 20200714
  Serious: Yes (Death, Other)
  Sender: FDA-Public Use
  Company Number: US-SA-2020SA131828

PATIENT

DRUGS (3)
  1. REMDESIVIR. [Concomitant]
     Active Substance: REMDESIVIR
     Indication: ACCIDENTAL EXPOSURE TO PRODUCT
     Dosage: 200 MG, UNK
     Route: 042
     Dates: start: 20200415, end: 20200415
  2. SARILUMAB [Suspect]
     Active Substance: SARILUMAB
     Indication: COVID-19
     Dosage: 200 MG, 1X
     Route: 042
     Dates: start: 20200414, end: 20200414
  3. SARILUMAB [Suspect]
     Active Substance: SARILUMAB
     Dosage: 200 MG, 1X
     Route: 042
     Dates: start: 20200421, end: 20200421

REACTIONS (3)
  - Alanine aminotransferase increased [Not Recovered/Not Resolved]
  - Respiratory failure [Fatal]
  - Aspartate aminotransferase increased [Not Recovered/Not Resolved]

NARRATIVE: CASE EVENT DATE: 20200511
